FAERS Safety Report 5156604-4 (Version None)
Quarter: 2006Q4

REPORT INFORMATION
  Report Type: 
  Country: None (occurrence: None)
  Receive Date: 20061115
  Receipt Date: 20061106
  Transmission Date: 20070319
  Serious: Yes (Hospitalization, Other)
  Sender: FDA-Public Use
  Company Number: 237293K06USA

PATIENT
  Age: 66 Year
  Sex: Male

DRUGS (15)
  1. REBIF [Suspect]
     Indication: MULTIPLE SCLEROSIS
     Dosage: 44 MCG, 3 IN 1 WEEK, SUBCUTANEOUS
     Route: 058
     Dates: start: 20050301, end: 20050801
  2. AVONEX [Suspect]
     Dosage: 30 MCG, 1 IN 1 WEEKS, NOT REPORTED
  3. CELEBREX [Concomitant]
  4. FLUOXETINE (FLUOXETINE /00724401/) [Concomitant]
  5. INDERAL [Concomitant]
  6. KADIAN [Concomitant]
  7. LAMICTAL [Concomitant]
  8. NAMENDA [Concomitant]
  9. PROVIGIL [Concomitant]
  10. RITALIN [Concomitant]
  11. WELLBUTRIN SR [Concomitant]
  12. PREVACID [Concomitant]
  13. DITROPAN (OXYBUTYNIN /00538901/) [Concomitant]
  14. CRESTOR [Concomitant]
  15. ZOMETA [Concomitant]

REACTIONS (3)
  - FATIGUE [None]
  - LUNG CARCINOMA CELL TYPE UNSPECIFIED RECURRENT [None]
  - PAIN [None]
